FAERS Safety Report 8460231-0 (Version None)
Quarter: 2012Q2

REPORT INFORMATION
  Report Type: 
  Country: None (occurrence: None)
  Receive Date: 20120323
  Receipt Date: 20111221
  Transmission Date: 20120825
  Serious: Yes (Other)
  Sender: FDA-Public Use
  Company Number: 163-21880-11092601

PATIENT
  Age: 34 Year
  Sex: Female

DRUGS (4)
  1. PLAQEUNIL (HYDROXYCHLOROQUINE PHOSPHATE) [Concomitant]
  2. PREDNISONE TAB [Concomitant]
  3. LENALIDOMIDE [Suspect]
     Indication: SYSTEMIC LUPUS ERYTHEMATOSUS
     Dosage: 5 MG, DAILY, PO
     Route: 048
     Dates: start: 20110818, end: 20110901
  4. GABAPENTIN [Concomitant]

REACTIONS (4)
  - HYPERSENSITIVITY [None]
  - ERYTHEMA [None]
  - PRURITUS [None]
  - HEADACHE [None]
